FAERS Safety Report 15530990 (Version 1)
Quarter: 2018Q4

REPORT INFORMATION
  Report Type: Spontaneous
  Country: US (occurrence: US)
  Receive Date: 20181019
  Receipt Date: 20181019
  Transmission Date: 20190205
  Serious: No
  Sender: FDA-Public Use
  Company Number: US-JNJFOC-20181003364

PATIENT
  Sex: Female

DRUGS (8)
  1. VITAMIN D [Concomitant]
     Active Substance: CHOLECALCIFEROL
  2. ACYCLOVIR. [Concomitant]
     Active Substance: ACYCLOVIR
  3. IMBRUVICA [Suspect]
     Active Substance: IBRUTINIB
     Indication: PRODUCT USED FOR UNKNOWN INDICATION
     Route: 048
     Dates: start: 2018
  4. ATORVASTATIN [Concomitant]
     Active Substance: ATORVASTATIN
  5. METOPROLOL. [Concomitant]
     Active Substance: METOPROLOL
  6. CALCIUM VITAMIN D [Concomitant]
     Active Substance: CALCIUM\VITAMIN D
  7. MELATONIN [Concomitant]
     Active Substance: MELATONIN
  8. OXYBUTYNIN. [Concomitant]
     Active Substance: OXYBUTYNIN CHLORIDE

REACTIONS (3)
  - Urinary tract infection [Unknown]
  - Off label use [Unknown]
  - Incorrect dose administered [Unknown]

NARRATIVE: CASE EVENT DATE: 2018
